FAERS Safety Report 19770555 (Version 1)
Quarter: 2021Q3

REPORT INFORMATION
  Report Type: Spontaneous
  Country: US (occurrence: US)
  Receive Date: 20210901
  Receipt Date: 20210901
  Transmission Date: 20211014
  Serious: Yes (Other)
  Sender: FDA-Public Use
  Company Number: US-BAYER-2021-199634

PATIENT
  Sex: Male

DRUGS (1)
  1. MILK OF MAGNESIA CHERRY [Suspect]
     Active Substance: MAGNESIUM HYDROXIDE
     Dosage: UNK ML
     Route: 048
     Dates: start: 20210508

REACTIONS (2)
  - Intestinal obstruction [Unknown]
  - Drug ineffective [Unknown]
